FAERS Safety Report 11328397 (Version 1)
Quarter: 2015Q3

REPORT INFORMATION
  Report Type: Spontaneous
  Country: US (occurrence: US)
  Receive Date: 20150731
  Receipt Date: 20150731
  Transmission Date: 20151125
  Serious: No
  Sender: FDA-Public Use
  Company Number: US-TEVA-583318USA

PATIENT

DRUGS (1)
  1. COPAXONE [Suspect]
     Active Substance: GLATIRAMER ACETATE
     Indication: MULTIPLE SCLEROSIS
     Route: 058

REACTIONS (17)
  - Abdominal discomfort [Unknown]
  - Injection site reaction [Unknown]
  - Urinary tract infection [Unknown]
  - Abdominal distension [Unknown]
  - Nausea [Unknown]
  - Oedema peripheral [Unknown]
  - Hyperhidrosis [Unknown]
  - Ear pain [Unknown]
  - Herpes simplex [Unknown]
  - Rash [Unknown]
  - Swelling [Unknown]
  - Musculoskeletal stiffness [Unknown]
  - Tooth disorder [Unknown]
  - Asthenia [Unknown]
  - Dizziness [Unknown]
  - Headache [Unknown]
  - Epistaxis [Unknown]
